FAERS Safety Report 16913980 (Version 1)
Quarter: 2019Q4

REPORT INFORMATION
  Report Type: Spontaneous
  Country: CA (occurrence: CA)
  Receive Date: 20191014
  Receipt Date: 20191014
  Transmission Date: 20200122
  Serious: Yes (Other)
  Sender: FDA-Public Use
  Company Number: CA-OTSUKA-2019_007545

PATIENT
  Age: 31 Year
  Sex: Female
  Weight: 51.7 kg

DRUGS (4)
  1. JINARC [Suspect]
     Active Substance: TOLVAPTAN
     Dosage: 15 MG, QD
     Route: 065
     Dates: start: 201808
  2. JINARC [Suspect]
     Active Substance: TOLVAPTAN
     Dosage: 30 MG, QD
     Route: 065
  3. JINARC [Suspect]
     Active Substance: TOLVAPTAN
     Indication: CONGENITAL CYSTIC KIDNEY DISEASE
     Dosage: 45 MG, QD
     Route: 065
     Dates: start: 201808
  4. JINARC [Suspect]
     Active Substance: TOLVAPTAN
     Dosage: 60 MG, QD
     Route: 065

REACTIONS (4)
  - Treatment noncompliance [Unknown]
  - Hyponatraemia [Recovered/Resolved]
  - Blood osmolarity decreased [Recovered/Resolved]
  - Urine output increased [Unknown]

NARRATIVE: CASE EVENT DATE: 20181004
